FAERS Safety Report 9539051 (Version 2)
Quarter: 2013Q4

REPORT INFORMATION
  Report Type: Spontaneous
  Country: FR (occurrence: FR)
  Receive Date: 20130920
  Receipt Date: 20131227
  Transmission Date: 20140711
  Serious: No
  Sender: FDA-Public Use
  Company Number: FR-JNJFOC-20130911160

PATIENT
  Age: 85 Year
  Sex: Female

DRUGS (4)
  1. XARELTO [Suspect]
     Indication: CEREBROVASCULAR ACCIDENT PROPHYLAXIS
     Route: 048
     Dates: start: 20130807, end: 20130831
  2. XARELTO [Suspect]
     Indication: ATRIAL FIBRILLATION
     Route: 048
     Dates: start: 20130807, end: 20130831
  3. BI-TILDIEM [Concomitant]
     Route: 065
     Dates: start: 20130807
  4. BISOPROLOL [Concomitant]
     Route: 065
     Dates: start: 20130807

REACTIONS (1)
  - Prurigo [Recovered/Resolved]
